FAERS Safety Report 5225831-X (Version None)
Quarter: 2007Q1

REPORT INFORMATION
  Report Type: 
  Country: None (occurrence: None)
  Receive Date: 20070130
  Receipt Date: 20070130
  Transmission Date: 20070707
  Serious: Yes (Hospitalization)
  Sender: FDA-Public Use
  Company Number: None

PATIENT
  Age: 75 Year
  Sex: Female

DRUGS (2)
  1. COUMADIN [Suspect]
     Dosage: 4MG DAILY PO
     Route: 048
  2. IBUPROFEN [Suspect]
     Dosage: 200MG PRN PO
     Route: 048

REACTIONS (3)
  - DIVERTICULITIS INTESTINAL HAEMORRHAGIC [None]
  - ILL-DEFINED DISORDER [None]
  - INTERNATIONAL NORMALISED RATIO INCREASED [None]
